FAERS Safety Report 16969619 (Version 2)
Quarter: 2020Q4

REPORT INFORMATION
  Report Type: Spontaneous
  Country: DE (occurrence: DE)
  Receive Date: 20191029
  Receipt Date: 20201226
  Transmission Date: 20210113
  Serious: Yes (Hospitalization, Other)
  Sender: FDA-Public Use
  Company Number: DE-TORRENT-00015823

PATIENT
  Age: 89 Year
  Sex: Female

DRUGS (17)
  1. CEFEPIME [Concomitant]
     Active Substance: CEFEPIME HYDROCHLORIDE
     Indication: PRODUCT USED FOR UNKNOWN INDICATION
     Dosage: TWO TIMES, DOSE-ADJUSTED BASED ON KIDNEY FUNCTION
     Route: 042
  2. MONURIL [Concomitant]
     Active Substance: FOSFOMYCIN TROMETHAMINE
     Indication: ESCHERICHIA INFECTION
     Dosage: SINGLE DOSE OF 3 G
     Route: 065
  3. NOVALGIN (DIPYRONE) [Concomitant]
     Active Substance: DIPYRONE
     Indication: PAIN
     Dosage: 2.5 G AT 2-4 ML/H, 2.5-5 G OVER 24H
     Route: 042
  4. DAFALGAN [Concomitant]
     Active Substance: ACETAMINOPHEN
     Indication: PAIN
     Dosage: UNKNOWN
     Route: 042
  5. MAGNESIUM (UNSPECIFIED)/POTASSIUM (UNSPECIFIED) [Concomitant]
     Indication: HYPOKALAEMIA
     Dosage: UNKNOWN
  6. CITALOPRAM [Suspect]
     Active Substance: CITALOPRAM HYDROBROMIDE
     Indication: DEPRESSION
     Dosage: UNKNOWN
     Route: 065
  7. LORAZEPAM. [Suspect]
     Active Substance: LORAZEPAM
     Indication: DEPRESSION
     Dosage: UNKNOWN
     Route: 065
  8. MYDOCALM (TOLPERISONE HYDROCHLORIDE) [Interacting]
     Active Substance: TOLPERISONE HYDROCHLORIDE
     Indication: PAIN
     Dosage: 450 MILLIGRAM
     Route: 048
  9. PETHIDINE [Interacting]
     Active Substance: MEPERIDINE
     Indication: PAIN
     Dosage: GIVEN AT A DOSE OF 400-800 MG
     Route: 065
  10. CITALOPRAM [Suspect]
     Active Substance: CITALOPRAM HYDROBROMIDE
     Indication: DEPRESSION
     Dosage: UNKNOWN
  11. DIAZEPAM. [Concomitant]
     Active Substance: DIAZEPAM
     Indication: PRODUCT USED FOR UNKNOWN INDICATION
     Dosage: 5 MG, SEVERAL TIMES DAILY AS NEEDED
     Route: 054
  12. MIRTAZAPINE. [Interacting]
     Active Substance: MIRTAZAPINE
     Indication: DEPRESSION
     Dosage: UNKNOWN
     Route: 065
  13. MEPERIDINE [Suspect]
     Active Substance: MEPERIDINE
     Indication: PAIN
     Dosage: TOTAL VOLUME OF 400-800 MG
     Route: 042
  14. OXYCONTIN [Interacting]
     Active Substance: OXYCODONE HYDROCHLORIDE
     Indication: PAIN
     Dosage: UNKNOWN
     Route: 065
  15. HALOPERIDOL. [Concomitant]
     Active Substance: HALOPERIDOL
     Indication: PRODUCT USED FOR UNKNOWN INDICATION
     Dosage: ONE DOSE
  16. QUETIAPINE. [Suspect]
     Active Substance: QUETIAPINE
     Indication: DEPRESSION
     Dosage: INCREASED CONTINUOUSLY
     Route: 065
  17. DUROGESIC MATRIX [Concomitant]
     Active Substance: FENTANYL
     Indication: PAIN
     Dosage: 12.5 MICROGRAM, GIVEN AT A LOW DOSE
     Route: 065

REACTIONS (10)
  - Hallucination [Recovering/Resolving]
  - Serotonin syndrome [Recovering/Resolving]
  - Pelvic fracture [Recovering/Resolving]
  - Drug interaction [Recovering/Resolving]
  - Diarrhoea [Recovering/Resolving]
  - Hypertension [Recovering/Resolving]
  - Respiratory alkalosis [Recovering/Resolving]
  - Fall [Recovering/Resolving]
  - Delirium [Recovering/Resolving]
  - Fracture [Recovering/Resolving]

NARRATIVE: CASE EVENT DATE: 2015
